FAERS Safety Report 7308608-0 (Version None)
Quarter: 2011Q1

REPORT INFORMATION
  Report Type: 
  Country: None (occurrence: None)
  Receive Date: 20110211
  Receipt Date: 20110131
  Transmission Date: 20110831
  Serious: Yes (Other)
  Sender: FDA-Public Use
  Company Number: 2009-03005

PATIENT
  Age: 59 Year
  Sex: Male
  Weight: 62 kg

DRUGS (8)
  1. NIFLAN (PRANOPROFEN) [Concomitant]
  2. AMOXICILLIN TRIHYDRATE [Concomitant]
  3. TARIVIDI OPHTHALMIC (OFLOXACIN) [Concomitant]
  4. LAC B (LACTOBACILLUS BIFIDUS, LYOPHILIZED) [Concomitant]
  5. VELCADE [Suspect]
     Indication: MULTIPLE MYELOMA
     Dosage: 2.2 MG, CYCLIC, INTRAVENOUS
     Route: 042
     Dates: start: 20070605, end: 20080709
  6. LEVOFLOXACIN [Concomitant]
  7. ZOMETA [Concomitant]
  8. CLARITN (LORATADINE) [Concomitant]

REACTIONS (9)
  - GRANULOMA [None]
  - DIARRHOEA [None]
  - RASH [None]
  - PYREXIA [None]
  - WHITE BLOOD CELL COUNT DECREASED [None]
  - BLOOD LACTATE DEHYDROGENASE INCREASED [None]
  - PLATELET COUNT DECREASED [None]
  - BLOOD ALKALINE PHOSPHATASE INCREASED [None]
  - NEUTROPHIL COUNT DECREASED [None]
